FAERS Safety Report 8530717-9 (Version None)
Quarter: 2012Q3

REPORT INFORMATION
  Report Type: 
  Country: None (occurrence: None)
  Receive Date: 20120723
  Receipt Date: 20120718
  Transmission Date: 20120928
  Serious: No
  Sender: FDA-Public Use
  Company Number: US-B.I. PHARMACEUTICALS,INC./RIDGEFIELD-2011-BP-22071BP

PATIENT
  Sex: Female

DRUGS (17)
  1. COMBIVENT [Suspect]
     Indication: DYSPNOEA
     Route: 055
  2. FLUTICASONE PROPIONATE [Concomitant]
     Indication: HYPERSENSITIVITY
  3. COLON HEALTH [Concomitant]
     Indication: PROBIOTIC THERAPY
     Route: 048
  4. PRADAXA [Suspect]
     Indication: ATRIAL FIBRILLATION
     Dosage: 300 MG
     Route: 048
     Dates: start: 20101201
  5. PRADAXA [Suspect]
     Indication: CEREBROVASCULAR ACCIDENT
  6. ASPIRIN [Concomitant]
     Indication: ANTICOAGULANT THERAPY
     Dosage: 81 MG
     Route: 048
  7. POTASSIUM CHLORIDE [Concomitant]
     Dosage: 40 MEQ
     Route: 048
     Dates: start: 20101201
  8. ALBUTEROL [Concomitant]
     Indication: DYSPNOEA
     Route: 055
  9. COL-RITE [Concomitant]
     Indication: FAECES HARD
     Route: 048
  10. LEVOTHYROXINE SODIUM [Concomitant]
     Indication: THYROID DISORDER
     Dosage: 125 MG
     Route: 048
     Dates: start: 20101201
  11. ASCORBIC ACID [Concomitant]
     Indication: FAECES HARD
     Route: 048
  12. FUROSEMIDE [Concomitant]
     Indication: FLUID RETENTION
     Dosage: 40 MG
     Route: 048
     Dates: start: 20101201
  13. VERAPAMIL [Concomitant]
     Dosage: 240 MG
     Route: 048
  14. LOVASTATIN [Concomitant]
     Indication: CARDIAC DISORDER
     Dosage: 40 MG
     Route: 048
  15. RESVERATROL [Concomitant]
     Indication: VITAMIN SUPPLEMENTATION
     Route: 048
  16. METOPROLOL SUCCINATE [Concomitant]
     Dosage: 200 MG
     Route: 048
     Dates: start: 20111201
  17. FISH OIL [Concomitant]
     Indication: VITAMIN SUPPLEMENTATION
     Route: 048

REACTIONS (3)
  - CONTUSION [None]
  - HAEMATOMA [None]
  - HEADACHE [None]
